FAERS Safety Report 6398947-2 (Version None)
Quarter: 2009Q4

REPORT INFORMATION
  Report Type: 
  Country: None (occurrence: None)
  Receive Date: 20091013
  Receipt Date: 20091005
  Transmission Date: 20100525
  Serious: No
  Sender: FDA-Public Use
  Company Number: US-B.I. PHARMACEUTICALS,INC./RIDGEFIELD-2009-BP-11564BP

PATIENT
  Age: 47 Year
  Sex: Female
  Weight: 45.36 kg

DRUGS (2)
  1. MICARDIS [Suspect]
     Dosage: 20 MG
     Dates: start: 20060701
  2. PRISTIQ [Concomitant]
     Dates: start: 20090601, end: 20090901

REACTIONS (3)
  - BLOOD PRESSURE INCREASED [None]
  - HEADACHE [None]
  - WRONG TECHNIQUE IN DRUG USAGE PROCESS [None]
